FAERS Safety Report 20022766 (Version 1)
Quarter: 2021Q4

REPORT INFORMATION
  Report Type: Spontaneous
  Country: DE (occurrence: DE)
  Receive Date: 20211102
  Receipt Date: 20211102
  Transmission Date: 20220303
  Serious: Yes (Other)
  Sender: FDA-Public Use
  Company Number: DE-AMGEN-DEUSP2021169393

PATIENT

DRUGS (5)
  1. PEGFILGRASTIM [Suspect]
     Active Substance: PEGFILGRASTIM
     Indication: Prophylaxis
     Dosage: 6 MILLIGRAM, AFTER CHEMO (ON DAY 02 (24 HOURS AFTER CHEMOTHERAPY))
     Route: 058
  2. DOXORUBICIN [Concomitant]
     Active Substance: DOXORUBICIN
     Indication: Breast cancer
     Dosage: 60 MILLIGRAM/SQ. METER ON DAY 1 FOR FOUR THREE WEEK CYCLES
     Route: 042
  3. DOXORUBICIN [Concomitant]
     Active Substance: DOXORUBICIN
     Indication: Metastatic neoplasm
     Dosage: UNK
     Route: 042
  4. DOCETAXEL [Concomitant]
     Active Substance: DOCETAXEL
     Indication: Breast cancer
     Dosage: 75 MILLIGRAM/SQ. METER ON DAY 1 FOR FOUR THREE WEEK CYCLES
     Route: 042
  5. DOCETAXEL [Concomitant]
     Active Substance: DOCETAXEL
     Indication: Metastatic neoplasm
     Dosage: UNK
     Route: 042

REACTIONS (32)
  - Febrile neutropenia [Unknown]
  - Enterocolitis [Unknown]
  - Uterine leiomyoma [Unknown]
  - Neutropenia [Unknown]
  - Thrombocytopenia [Unknown]
  - Alopecia [Unknown]
  - Diarrhoea [Unknown]
  - Fatigue [Unknown]
  - Decreased appetite [Unknown]
  - Vomiting [Unknown]
  - Stomatitis [Unknown]
  - Tachycardia [Unknown]
  - Peripheral sensory neuropathy [Unknown]
  - Respiratory tract infection viral [Unknown]
  - Laryngeal pain [Unknown]
  - Constipation [Unknown]
  - Dysgeusia [Unknown]
  - Oedema peripheral [Unknown]
  - Mucosal inflammation [Unknown]
  - Malaise [Unknown]
  - Discomfort [Unknown]
  - Headache [Unknown]
  - Arthralgia [Unknown]
  - Abdominal pain upper [Unknown]
  - Back pain [Unknown]
  - Dizziness [Unknown]
  - Pyrexia [Unknown]
  - Asthenia [Unknown]
  - Nausea [Unknown]
  - Rash [Unknown]
  - Myalgia [Unknown]
  - Bone pain [Unknown]
